FAERS Safety Report 8992948 (Version 4)
Quarter: 2013Q4

REPORT INFORMATION
  Report Type: Spontaneous
  Country: CA (occurrence: CA)
  Receive Date: 20130102
  Receipt Date: 20131110
  Transmission Date: 20140711
  Serious: Yes (Life-Threatening, Other)
  Sender: FDA-Public Use
  Company Number: CA-JNJFOC-20121212106

PATIENT
  Age: 40 Year
  Sex: Female

DRUGS (3)
  1. BENADRYL ALLERGY ELIXIR [Suspect]
     Indication: RASH
     Route: 065
     Dates: start: 20121122
  2. BENADRYL ALLERGY ELIXIR [Suspect]
     Indication: RASH
     Dosage: 1 TEASPOON
     Route: 065
     Dates: start: 20121119, end: 20121119
  3. CALCIUM [Concomitant]
     Indication: PRODUCT USED FOR UNKNOWN INDICATION
     Route: 065

REACTIONS (6)
  - Anaphylactic shock [Not Recovered/Not Resolved]
  - Dysgeusia [Not Recovered/Not Resolved]
  - Visual field defect [Recovered/Resolved]
  - Laryngeal oedema [Recovered/Resolved]
  - Swollen tongue [Recovered/Resolved]
  - Nausea [Recovered/Resolved]
